FAERS Safety Report 4318737-1 (Version None)
Quarter: 2004Q1

REPORT INFORMATION
  Report Type: 
  Country: None (occurrence: None)
  Receive Date: 20040315
  Receipt Date: 20040302
  Transmission Date: 20041129
  Serious: Yes (Death)
  Sender: FDA-Public Use
  Company Number: 2003-BP-06850PF

PATIENT
  Age: 78 Year
  Sex: Female

DRUGS (9)
  1. SPIRIVA [Suspect]
     Dosage: 18 MCG (18 MCG, QD) IH
     Route: 055
  2. ASPIRIN [Concomitant]
  3. TEOPHYLIN [Concomitant]
  4. ENALAPRIL MALEATE [Concomitant]
  5. LANITOP (METILDIGOXIN) [Concomitant]
  6. METOPROLOL (METOPROLOL) [Concomitant]
  7. FUROSEMIDE [Concomitant]
  8. NIMODIPINE (NIMODIPINE) [Concomitant]
  9. TRAZDONE [Concomitant]

REACTIONS (1)
  - PNEUMONIA [None]
